FAERS Safety Report 10045913 (Version 2)
Quarter: 2014Q2

REPORT INFORMATION
  Report Type: Spontaneous
  Country: US (occurrence: US)
  Receive Date: 20140329
  Receipt Date: 20140411
  Transmission Date: 20141212
  Serious: No
  Sender: FDA-Public Use
  Company Number: US-009507513-1403USA012515

PATIENT
  Age: 16 Year
  Sex: Female

DRUGS (1)
  1. DULERA [Suspect]
     Indication: ASTHMA
     Dosage: 2 INHALATIONS TWICE DAILY
     Route: 055

REACTIONS (2)
  - Eye swelling [Unknown]
  - Swelling face [Unknown]
